FAERS Safety Report 5201748-1 (Version None)
Quarter: 2006Q4

REPORT INFORMATION
  Report Type: 
  Country: None (occurrence: None)
  Receive Date: 20061013
  Receipt Date: 20060214
  Transmission Date: 20070319
  Serious: Yes (Hospitalization)
  Sender: FDA-Public Use
  Company Number: S05-USA-01297-02

PATIENT
  Age: 1 Day
  Sex: Female
  Weight: 2.5 kg

DRUGS (2)
  1. LEXAPRO [Suspect]
     Dosage: 10 MG QD TRANSPLACENTAL
     Route: 064
     Dates: start: 20050101, end: 20051026
  2. MAGNESIUM SULFATE [Suspect]
     Indication: PRE-ECLAMPSIA
     Dates: start: 20051026, end: 20051026

REACTIONS (3)
  - HYPOKINESIA NEONATAL [None]
  - HYPOTONIA NEONATAL [None]
  - SOMNOLENCE NEONATAL [None]
